FAERS Safety Report 5676394-6 (Version None)
Quarter: 2008Q1

REPORT INFORMATION
  Report Type: 
  Country: None (occurrence: None)
  Receive Date: 20080321
  Receipt Date: 20080312
  Transmission Date: 20080703
  Serious: Yes (Other)
  Sender: FDA-Public Use
  Company Number: US-PFIZER INC-2008023689

PATIENT
  Sex: Female
  Weight: 86.363 kg

DRUGS (19)
  1. CHANTIX [Suspect]
     Indication: SMOKING CESSATION THERAPY
  2. NASACORT AQ [Concomitant]
  3. ZYFLO [Concomitant]
  4. WELCHOL [Concomitant]
  5. NEURONTIN [Concomitant]
  6. GUAIFENEX [Concomitant]
  7. ZYRTEC [Concomitant]
  8. NORVASC [Concomitant]
  9. NEXIUM [Concomitant]
  10. LEXAPRO [Concomitant]
  11. ADVAIR DISKUS 100/50 [Concomitant]
  12. QVAR 40 [Concomitant]
  13. XANAX [Concomitant]
  14. TRAZODONE HCL [Concomitant]
  15. COMBIVENT [Concomitant]
  16. PATANOL [Concomitant]
  17. REGLAN [Concomitant]
  18. VIVELLE-DOT [Concomitant]
  19. BUSPAR [Concomitant]

REACTIONS (8)
  - AGGRESSION [None]
  - DRUG WITHDRAWAL SYNDROME [None]
  - ILL-DEFINED DISORDER [None]
  - IRRITABILITY [None]
  - MALAISE [None]
  - MOOD SWINGS [None]
  - NERVOUSNESS [None]
  - SLEEP DISORDER [None]
